FAERS Safety Report 19926937 (Version 1)
Quarter: 2021Q4

REPORT INFORMATION
  Report Type: Spontaneous
  Country: US (occurrence: US)
  Receive Date: 20211007
  Receipt Date: 20211007
  Transmission Date: 20220303
  Serious: No
  Sender: FDA-Public Use
  Company Number: US-INDIVIOR US-INDV-127560-2020

PATIENT
  Sex: Female

DRUGS (1)
  1. SUBOXONE [Suspect]
     Active Substance: BUPRENORPHINE HYDROCHLORIDE\NALOXONE HYDROCHLORIDE
     Indication: Drug dependence
     Dosage: TWO IN THE MORNING, ONE AT NIGHT OR THREE TIMES A DAY
     Route: 060

REACTIONS (6)
  - Tooth loss [Unknown]
  - Tooth fracture [Unknown]
  - Intervertebral disc degeneration [Unknown]
  - Dental caries [Unknown]
  - Inappropriate schedule of product administration [Not Recovered/Not Resolved]
  - Maternal exposure during pregnancy [Recovered/Resolved]

NARRATIVE: CASE EVENT DATE: 20201101
